FAERS Safety Report 5413290-3 (Version None)
Quarter: 2007Q3

REPORT INFORMATION
  Report Type: 
  Country: None (occurrence: None)
  Receive Date: 20070810
  Receipt Date: 20070731
  Transmission Date: 20080115
  Serious: Yes (Other)
  Sender: FDA-Public Use
  Company Number: 15303

PATIENT
  Age: 82 Year
  Sex: Male

DRUGS (13)
  1. MIDAZOLAM HCL [Suspect]
     Indication: ANXIETY
     Dosage: 5 MG SC
     Route: 058
     Dates: start: 20060811, end: 20060815
  2. MIDAZOLAM HCL [Suspect]
     Indication: ANXIETY
  3. BENDROFLUMETHIAZIDE [Concomitant]
  4. BICALUTAMIDE [Concomitant]
  5. DEXAMETHASONE 0.5MG TAB [Concomitant]
  6. IRBESARTAN [Concomitant]
  7. METRONIDAZOLE [Concomitant]
  8. MORPHINE [Concomitant]
  9. SIMVASTATIN [Concomitant]
  10. TRAMADOL HCL [Concomitant]
  11. TRIMETHOPRIM [Concomitant]
  12. ENOXAPARIN SODIUM [Concomitant]
  13. OMEPRAZOLE [Concomitant]

REACTIONS (9)
  - CONTUSION [None]
  - DISSEMINATED INTRAVASCULAR COAGULATION [None]
  - DYSPHAGIA [None]
  - GAIT DISTURBANCE [None]
  - GENERAL PHYSICAL HEALTH DETERIORATION [None]
  - HEAD DEFORMITY [None]
  - INFUSION RELATED REACTION [None]
  - MELAENA [None]
  - TREMOR [None]
